FAERS Safety Report 7266920-8 (Version None)
Quarter: 2011Q1

REPORT INFORMATION
  Report Type: 
  Country: None (occurrence: None)
  Receive Date: 20110201
  Receipt Date: 20110124
  Transmission Date: 20110831
  Serious: No
  Sender: FDA-Public Use
  Company Number: US-JNJFOC-20110107737

PATIENT
  Sex: Male
  Weight: 77.11 kg

DRUGS (4)
  1. FENTANYL-100 [Suspect]
     Indication: MUSCULOSKELETAL PAIN
     Route: 062
  2. FENTANYL [Suspect]
     Indication: MUSCULOSKELETAL PAIN
     Route: 062
  3. FENTANYL [Suspect]
     Indication: NECK PAIN
     Route: 062
  4. FENTANYL-100 [Suspect]
     Indication: NECK PAIN
     Route: 062

REACTIONS (4)
  - VOMITING [None]
  - MALAISE [None]
  - DRUG DOSE OMISSION [None]
  - DECREASED APPETITE [None]
